FAERS Safety Report 5809342-6 (Version None)
Quarter: 2008Q3

REPORT INFORMATION
  Report Type: 
  Country: None (occurrence: None)
  Receive Date: 20080714
  Receipt Date: 20080703
  Transmission Date: 20090109
  Serious: Yes (Other)
  Sender: FDA-Public Use
  Company Number: PHBS2007VE20209

PATIENT
  Sex: Female

DRUGS (5)
  1. DIOVAN [Suspect]
     Dosage: 80 MG/DAY
     Dates: start: 20071020
  2. DIOVAN [Suspect]
     Dosage: 160 MG/DAY
     Dates: start: 20071122
  3. DIOVAN [Suspect]
     Dosage: 80 MG/DAY
  4. ACETYLSALICYLIC ACID SRT [Concomitant]
     Dosage: 81 MG
  5. LECARPINE [Concomitant]
     Dosage: 10 MG/DAILY

REACTIONS (2)
  - DYSARTHRIA [None]
  - MUSCULAR WEAKNESS [None]
